FAERS Safety Report 8348260-9 (Version None)
Quarter: 2012Q2

REPORT INFORMATION
  Report Type: 
  Country: None (occurrence: None)
  Receive Date: 20120509
  Receipt Date: 20120503
  Transmission Date: 20120825
  Serious: No
  Sender: FDA-Public Use
  Company Number: US-PFIZER INC-2012109698

PATIENT
  Sex: Male
  Weight: 87.982 kg

DRUGS (5)
  1. METFORMIN [Concomitant]
     Indication: DIABETES MELLITUS
     Dosage: 500 MG, 2X/DAY
     Dates: start: 20040101
  2. CARBAMAZEPINE [Concomitant]
     Indication: NEUROPATHY PERIPHERAL
     Dosage: 200 MG, DAILY
     Dates: start: 20040101
  3. LISINOPRIL [Concomitant]
     Indication: HYPERTENSION
     Dosage: 20 MG, 2X/DAY
     Dates: start: 20040101
  4. VIAGRA [Suspect]
     Indication: ERECTILE DYSFUNCTION
     Dosage: 100 MG, AS NEEDED
     Route: 048
     Dates: start: 20120301
  5. LANTUS [Concomitant]
     Indication: DIABETES MELLITUS
     Dosage: 26 IU,DAILY
     Dates: start: 20040101

REACTIONS (1)
  - DRUG INEFFECTIVE [None]
